FAERS Safety Report 5117806-6 (Version None)
Quarter: 2006Q3

REPORT INFORMATION
  Report Type: 
  Country: None (occurrence: None)
  Receive Date: 20060929
  Receipt Date: 20060927
  Transmission Date: 20061208
  Serious: Yes (Other)
  Sender: FDA-Public Use
  Company Number: 2006AP04508

PATIENT
  Age: 44 Year
  Sex: Female

DRUGS (9)
  1. SEROQUEL [Suspect]
     Route: 048
     Dates: end: 20040430
  2. CONSTAN [Suspect]
     Route: 048
     Dates: end: 20040430
  3. ROHYPNOL [Suspect]
     Route: 048
     Dates: end: 20040430
  4. SILECE [Suspect]
     Dates: end: 20040430
  5. HALOPERIDOL [Suspect]
     Dates: end: 20040430
  6. PROGRAF [Concomitant]
     Route: 048
  7. CELLCEPT [Concomitant]
     Route: 048
  8. MEDROL [Concomitant]
  9. SIMULECT [Concomitant]
     Route: 042

REACTIONS (4)
  - ANURIA [None]
  - KIDNEY TRANSPLANT REJECTION [None]
  - RENAL DISORDER [None]
  - RENAL TUBULAR DISORDER [None]
